FAERS Safety Report 6249202-2 (Version None)
Quarter: 2009Q2

REPORT INFORMATION
  Report Type: 
  Country: None (occurrence: None)
  Receive Date: 20090629
  Receipt Date: 20090622
  Transmission Date: 20091009
  Serious: No
  Sender: FDA-Public Use
  Company Number: PHHY2009DE18205

PATIENT
  Sex: Male
  Weight: 82 kg

DRUGS (1)
  1. RASILEZ [Suspect]
     Dosage: 150 MG
     Route: 048
     Dates: start: 20090504, end: 20090504

REACTIONS (4)
  - ANXIETY [None]
  - DYSPNOEA [None]
  - PALPITATIONS [None]
  - PARAESTHESIA [None]
